FAERS Safety Report 8888771 (Version 1)
Quarter: 2012Q4

REPORT INFORMATION
  Report Type: 
  Country: US (occurrence: US)
  Receive Date: 20121106
  Receipt Date: 20121106
  Transmission Date: 20130627
  Serious: No
  Sender: FDA-Public Use
  Company Number: US-TEVA-368655USA

PATIENT
  Sex: Female

DRUGS (1)
  1. PROAIR HFA [Suspect]
     Dates: start: 201210

REACTIONS (3)
  - Drug ineffective [Unknown]
  - Dyspnoea [Recovered/Resolved]
  - Chest pain [Recovered/Resolved]
